FAERS Safety Report 6330295 (Version 4)
Quarter: 2017Q3

REPORT INFORMATION
  Report Type: Spontaneous
  Country: US (occurrence: US)
  Receive Date: 20070611
  Receipt Date: 20170717
  Transmission Date: 20171128
  Serious: Yes (Death)
  Sender: FDA-Public Use
  Company Number: US-JNJFOC-20070600460

PATIENT
  Age: 4 Year
  Sex: Male

DRUGS (1)
  1. FENTANYL TRANSDERMAL SYSTEM [Suspect]
     Active Substance: FENTANYL
     Indication: ACCIDENTAL EXPOSURE TO PRODUCT
     Route: 062

REACTIONS (2)
  - Accidental exposure to product by child [Fatal]
  - Death [Fatal]
